FAERS Safety Report 5060499-7 (Version None)
Quarter: 2006Q2

REPORT INFORMATION
  Report Type: 
  Country: None (occurrence: None)
  Receive Date: 20060630
  Receipt Date: 20051102
  Transmission Date: 20061013
  Serious: Yes (Hospitalization)
  Sender: FDA-Public Use
  Company Number: VISP-PR-0511S-0574

PATIENT
  Age: 74 Year
  Sex: Male

DRUGS (1)
  1. VISIPAQUE [Suspect]
     Indication: PULMONARY MASS
     Dosage: 100 ML, SINGLE DOSE, I.V.
     Route: 042
     Dates: start: 20051026, end: 20051026

REACTIONS (1)
  - ANAPHYLACTOID SHOCK [None]
